FAERS Safety Report 18717535 (Version 8)
Quarter: 2021Q3

REPORT INFORMATION
  Report Type: Report from Study
  Country: CN (occurrence: CN)
  Receive Date: 20210108
  Receipt Date: 20210917
  Transmission Date: 20211014
  Serious: Yes (Death, Hospitalization)
  Sender: FDA-Public Use
  Company Number: CN-TEVA-2021-CN-1866477

PATIENT
  Age: 57 Year
  Sex: Male
  Weight: 63.4 kg

DRUGS (41)
  1. BENDAMUSTINE [Suspect]
     Active Substance: BENDAMUSTINE
     Indication: DIFFUSE LARGE B-CELL LYMPHOMA
     Route: 042
     Dates: start: 20200929
  2. SULFAMETHOXAZOLE COMPOUND [Concomitant]
     Dates: start: 20200928
  3. IBUPROFEN SUSTAINED RELEASE [Concomitant]
     Indication: PYREXIA
     Dates: start: 20201110, end: 20201110
  4. TROPISETRON HYDROCHLORIDE [Concomitant]
     Active Substance: TROPISETRON HYDROCHLORIDE
     Dates: start: 20201110, end: 20201111
  5. REDUCED GLUTATHIONE SODIUM [Concomitant]
     Active Substance: GLUTATHIONE
     Dates: start: 20201110, end: 20201111
  6. REDUCED GLUTATHIONE SODIUM [Concomitant]
     Active Substance: GLUTATHIONE
     Dates: start: 20201203, end: 20201206
  7. SODIUM BICARBONATE. [Concomitant]
     Active Substance: SODIUM BICARBONATE
     Dates: start: 20201020, end: 20201021
  8. ESOMEPRAZOLE SODIUM. [Concomitant]
     Active Substance: ESOMEPRAZOLE SODIUM
     Indication: PROPHYLAXIS
     Dates: start: 20201020, end: 20201021
  9. REDUCED GLUTATHIONE SODIUM [Concomitant]
     Active Substance: GLUTATHIONE
     Indication: PROPHYLAXIS
     Dates: start: 20201020, end: 20201021
  10. DIPHENHYDRAMINE HYDROCHLORIDE. [Concomitant]
     Active Substance: DIPHENHYDRAMINE HYDROCHLORIDE
     Indication: PROPHYLAXIS
     Dates: start: 20201020, end: 20201020
  11. DIPHENHYDRAMINE HYDROCHLORIDE. [Concomitant]
     Active Substance: DIPHENHYDRAMINE HYDROCHLORIDE
     Dates: start: 20201110, end: 20201110
  12. IBUPROFEN SUSTAINED RELEASE [Concomitant]
     Dates: start: 20210105, end: 20210105
  13. TROPISETRON HYDROCHLORIDE [Concomitant]
     Active Substance: TROPISETRON HYDROCHLORIDE
     Dates: start: 20201203, end: 20201203
  14. COMPOUND ELECTROLYTES AND GLUCOSE INJECTION MG3 [Concomitant]
     Dates: start: 20201223, end: 20201223
  15. RITUXIMAB. [Suspect]
     Active Substance: RITUXIMAB
     Indication: DIFFUSE LARGE B-CELL LYMPHOMA
     Route: 042
     Dates: start: 20200928
  16. ESOMEPRAZOLE SODIUM. [Concomitant]
     Active Substance: ESOMEPRAZOLE SODIUM
     Dates: start: 20201110, end: 20201111
  17. LEUCOGEN [Concomitant]
     Active Substance: LEUCOGEN
     Indication: LEUKOCYTOSIS
     Dates: start: 20201117, end: 20201118
  18. CHAI YIN KOU FU YE [Concomitant]
     Indication: UPPER RESPIRATORY TRACT INFECTION
     Dates: start: 20201117, end: 20201121
  19. IBUPROFEN SUSTAINED RELEASE [Concomitant]
     Indication: PROPHYLAXIS
     Dates: start: 20201020, end: 20201020
  20. TROPISETRON HYDROCHLORIDE [Concomitant]
     Active Substance: TROPISETRON HYDROCHLORIDE
     Indication: PROPHYLAXIS
     Dates: start: 20201020, end: 20201021
  21. FUROSEMIDE. [Concomitant]
     Active Substance: FUROSEMIDE
     Dates: start: 20201110, end: 20201110
  22. DEZOCINE [Concomitant]
     Active Substance: DEZOCINE
     Indication: PAIN
     Dates: start: 20201218, end: 20201220
  23. AMBROXOL HYDROCHLORIDE [Concomitant]
     Active Substance: AMBROXOL HYDROCHLORIDE
     Indication: PRODUCTIVE COUGH
     Dates: start: 20201223, end: 20201223
  24. COMPOUND ELECTROLYTES AND GLUCOSE INJECTION MG3 [Concomitant]
     Dates: start: 20201206, end: 20201206
  25. POLATUZUMAB VEDOTIN. [Suspect]
     Active Substance: POLATUZUMAB VEDOTIN
     Indication: DIFFUSE LARGE B-CELL LYMPHOMA
     Route: 042
     Dates: start: 20200929
  26. ESOMEPRAZOLE SODIUM. [Concomitant]
     Active Substance: ESOMEPRAZOLE SODIUM
     Dates: start: 20201203, end: 20201206
  27. PREDNISONE ACETATE [Concomitant]
     Active Substance: PREDNISONE ACETATE
     Indication: PROPHYLAXIS
     Route: 048
     Dates: start: 20201020, end: 20201020
  28. FUROSEMIDE. [Concomitant]
     Active Substance: FUROSEMIDE
     Dates: start: 20201203, end: 20201203
  29. LIAN HUA QING WEN JIAO NANG [Concomitant]
     Indication: UPPER RESPIRATORY TRACT INFECTION
     Dates: start: 20201117, end: 20201121
  30. SODIUM BICARBONATE. [Concomitant]
     Active Substance: SODIUM BICARBONATE
     Dates: start: 20201110, end: 20201111
  31. ALLOPURINOL. [Concomitant]
     Active Substance: ALLOPURINOL
     Dates: start: 20201020, end: 20201020
  32. COATED ALDEHYDE OXYSTARCH [Concomitant]
     Dates: start: 20201217
  33. GANCICLOVIR. [Concomitant]
     Active Substance: GANCICLOVIR
     Dates: start: 20200928
  34. LACTULOSE. [Concomitant]
     Active Substance: LACTULOSE
     Indication: CONSTIPATION
     Dates: start: 20201020, end: 20201022
  35. FUROSEMIDE. [Concomitant]
     Active Substance: FUROSEMIDE
     Indication: PROPHYLAXIS
     Dates: start: 20201020, end: 20201020
  36. ALLOPURINOL. [Concomitant]
     Active Substance: ALLOPURINOL
     Dates: start: 20201110, end: 20201112
  37. ESOMEPRAZOLE SODIUM. [Concomitant]
     Active Substance: ESOMEPRAZOLE SODIUM
     Dates: start: 20201223, end: 20201223
  38. PREDNISONE ACETATE [Concomitant]
     Active Substance: PREDNISONE ACETATE
     Route: 048
     Dates: start: 20201110, end: 20201110
  39. PREDNISONE ACETATE [Concomitant]
     Active Substance: PREDNISONE ACETATE
     Route: 048
     Dates: start: 20201203, end: 20201203
  40. DIPHENHYDRAMINE HYDROCHLORIDE. [Concomitant]
     Active Substance: DIPHENHYDRAMINE HYDROCHLORIDE
     Dates: start: 20201203, end: 20201203
  41. IBUPROFEN SUSTAINED RELEASE [Concomitant]
     Dates: start: 20201203, end: 20201203

REACTIONS (1)
  - Hydronephrosis [Recovered/Resolved]

NARRATIVE: CASE EVENT DATE: 20201218
